FAERS Safety Report 16690641 (Version 1)
Quarter: 2019Q3

REPORT INFORMATION
  Report Type: Spontaneous
  Country: US (occurrence: US)
  Receive Date: 20190811
  Receipt Date: 20190811
  Transmission Date: 20191004
  Serious: Yes (Other)
  Sender: FDA-Public Use
  Company Number: US-BRISTOL-MYERS SQUIBB COMPANY-BMS-2019-077123

PATIENT
  Sex: Female

DRUGS (1)
  1. ELIQUIS [Suspect]
     Active Substance: APIXABAN
     Indication: EMBOLISM VENOUS
     Dosage: UNAVAILABLE
     Route: 065

REACTIONS (8)
  - Hypoaesthesia [Unknown]
  - Chills [Unknown]
  - Musculoskeletal pain [Unknown]
  - Chest pain [Unknown]
  - Back pain [Unknown]
  - Cough [Unknown]
  - Insomnia [Unknown]
  - Nephrolithiasis [Unknown]
